FAERS Safety Report 25168788 (Version 2)
Quarter: 2025Q3

REPORT INFORMATION
  Report Type: Spontaneous
  Country: US (occurrence: US)
  Receive Date: 20250407
  Receipt Date: 20250714
  Transmission Date: 20251020
  Serious: No
  Sender: INTRA-CELLULAR THERAPIES
  Company Number: US-INTRA-CELLULAR THERAPIES, INC.-2025ICT00314

PATIENT
  Age: 24 Year
  Sex: Female

DRUGS (5)
  1. CAPLYTA [Suspect]
     Active Substance: LUMATEPERONE
     Indication: Bipolar disorder
  2. RISPERIDONE [Concomitant]
     Active Substance: RISPERIDONE
     Dosage: 2 MG, 1X/DAY
     Dates: end: 202206
  3. RISPERIDONE [Concomitant]
     Active Substance: RISPERIDONE
     Dates: start: 202206, end: 20220626
  4. RISPERIDONE [Concomitant]
     Active Substance: RISPERIDONE
     Dates: start: 20220627
  5. LAMOTRIGINE [Concomitant]
     Active Substance: LAMOTRIGINE

REACTIONS (12)
  - Dysarthria [Unknown]
  - Limb discomfort [Unknown]
  - Brain fog [Unknown]
  - Tension [Unknown]
  - Speech disorder [Unknown]
  - Photophobia [Unknown]
  - Disturbance in attention [Unknown]
  - Amenorrhoea [Unknown]
  - Excessive eye blinking [Unknown]
  - Muscle twitching [Unknown]
  - Tremor [Unknown]
  - Dyskinesia [Unknown]

NARRATIVE: CASE EVENT DATE: 20220601
